FAERS Safety Report 6175062-4 (Version None)
Quarter: 2009Q2

REPORT INFORMATION
  Report Type: 
  Country: None (occurrence: None)
  Receive Date: 20090430
  Receipt Date: 20090216
  Transmission Date: 20091009
  Serious: No
  Sender: FDA-Public Use
  Company Number: US-ASTRAZENECA-2009UW04404

PATIENT
  Age: 39 Year
  Sex: Female

DRUGS (1)
  1. NEXIUM [Suspect]
     Route: 048
     Dates: start: 20081201

REACTIONS (3)
  - ABDOMINAL DISCOMFORT [None]
  - ANOREXIA [None]
  - GASTROOESOPHAGEAL REFLUX DISEASE [None]
